FAERS Safety Report 8572882-3 (Version None)
Quarter: 2012Q2

REPORT INFORMATION
  Report Type: 
  Country: None (occurrence: None)
  Receive Date: 20120420
  Receipt Date: 20120420
  Transmission Date: 20120825
  Serious: Yes (Other)
  Sender: FDA-Public Use
  Company Number: ALL1-2011-03485

PATIENT
  Age: 32 Year
  Sex: Female
  Weight: 88 kg

DRUGS (2)
  1. VYVANSE [Suspect]
     Indication: ATTENTION DEFICIT/HYPERACTIVITY DISORDER
     Dosage: 50 MG, 1X/DAY:QD, ORAL ; 20 MG, 1X/DAY: QD, ORAL
     Route: 048
     Dates: start: 20110519, end: 20110919
  2. VYVANSE [Suspect]
     Indication: ATTENTION DEFICIT/HYPERACTIVITY DISORDER
     Dosage: 50 MG, 1X/DAY:QD, ORAL ; 20 MG, 1X/DAY: QD, ORAL
     Route: 048
     Dates: start: 20110501, end: 20110518

REACTIONS (4)
  - TACHYCARDIA [None]
  - DRUG EFFECT INCREASED [None]
  - CONVULSION [None]
  - HYPERTENSION [None]
